FAERS Safety Report 8112257-4 (Version None)
Quarter: 2012Q1

REPORT INFORMATION
  Report Type: 
  Country: None (occurrence: None)
  Receive Date: 20120203
  Receipt Date: 20120203
  Transmission Date: 20120608
  Serious: Yes (Other)
  Sender: FDA-Public Use
  Company Number: None

PATIENT
  Age: 47 Year
  Sex: Female
  Weight: 54.431 kg

DRUGS (1)
  1. POLYETHYLENE GLYCOL 3350 AND ELECTOLYTES [Suspect]
     Indication: COLONOSCOPY
     Dosage: 8 OUNCES
     Route: 048
     Dates: start: 20120122, end: 20120122

REACTIONS (2)
  - FLANK PAIN [None]
  - NEPHROLITHIASIS [None]
